FAERS Safety Report 18245777 (Version 1)
Quarter: 2020Q3

REPORT INFORMATION
  Report Type: Spontaneous
  Country: US (occurrence: US)
  Receive Date: 20200908
  Receipt Date: 20200908
  Transmission Date: 20201103
  Serious: No
  Sender: FDA-Public Use
  Company Number: None

PATIENT
  Age: 27 Year
  Sex: Female
  Weight: 61.23 kg

DRUGS (1)
  1. CIMZIA [Suspect]
     Active Substance: CERTOLIZUMAB PEGOL
     Indication: PSORIASIS
     Dosage: INJECT 400MG (2 SYRINGES) SUBCUTANEOUSLY EVERY 2  WEEKS AS DIRECTED
     Route: 058
     Dates: start: 202007

REACTIONS (2)
  - Antibiotic therapy [None]
  - Therapy interrupted [None]
